FAERS Safety Report 14268777 (Version 1)
Quarter: 2017Q4

REPORT INFORMATION
  Report Type: Spontaneous
  Country: US (occurrence: US)
  Receive Date: 20171211
  Receipt Date: 20171211
  Transmission Date: 20180321
  Serious: Yes (Hospitalization, Other)
  Sender: FDA-Public Use
  Company Number: US-BAYER-2017-231011

PATIENT
  Age: 67 Year
  Sex: Male

DRUGS (5)
  1. SORAFENIB (RAF KINASE INHIBITOR) [Suspect]
     Active Substance: SORAFENIB
     Indication: ACUTE MYELOID LEUKAEMIA
  2. CHOLECALCIFEROL [Concomitant]
     Active Substance: CHOLECALCIFEROL
  3. CALCIUM CARBONATE. [Concomitant]
     Active Substance: CALCIUM CARBONATE
  4. CALCITRIOL. [Concomitant]
     Active Substance: CALCITRIOL
  5. CYTARABINE. [Concomitant]
     Active Substance: CYTARABINE

REACTIONS (3)
  - Off label use [None]
  - Hypocalcaemia [None]
  - Product use in unapproved indication [None]
